FAERS Safety Report 15272937 (Version 1)
Quarter: 2018Q3

REPORT INFORMATION
  Report Type: Spontaneous
  Country: US (occurrence: US)
  Receive Date: 20180813
  Receipt Date: 20180813
  Transmission Date: 20181010
  Serious: No
  Sender: FDA-Public Use
  Company Number: US-PURDUE-USA-2018-0143213

PATIENT
  Age: 61 Year
  Sex: Male

DRUGS (2)
  1. BUPRENORPHINE (SIMILAR TO NDA 21?306) [Suspect]
     Active Substance: BUPRENORPHINE
     Indication: CERVICAL SPINAL STENOSIS
     Dosage: 20 MCG/HR, WEEKLY
     Route: 062
     Dates: start: 20180323
  2. BUPRENORPHINE (SIMILAR TO NDA 21?306) [Suspect]
     Active Substance: BUPRENORPHINE
     Indication: BACK PAIN
     Dosage: 10 MCG/HR, WEEKLY
     Route: 062

REACTIONS (1)
  - Drug effect incomplete [Recovered/Resolved]
